FAERS Safety Report 6372498-3 (Version None)
Quarter: 2009Q3

REPORT INFORMATION
  Report Type: 
  Country: None (occurrence: None)
  Receive Date: 20090924
  Receipt Date: 20080827
  Transmission Date: 20100115
  Serious: No
  Sender: FDA-Public Use
  Company Number: US-ASTRAZENECA-2008UW17631

PATIENT
  Age: 49 Year
  Sex: Female
  Weight: 65.8 kg

DRUGS (2)
  1. SEROQUEL [Suspect]
     Indication: INSOMNIA
     Route: 048
     Dates: start: 20040101
  2. SPIRONOLACTONE [Concomitant]

REACTIONS (1)
  - NERVOUS SYSTEM DISORDER [None]
